FAERS Safety Report 18974992 (Version 1)
Quarter: 2021Q1

REPORT INFORMATION
  Report Type: Spontaneous
  Country: CA (occurrence: CA)
  Receive Date: 20210306
  Receipt Date: 20210306
  Transmission Date: 20210420
  Serious: Yes (Death)
  Sender: FDA-Public Use
  Company Number: CA-ROCHE-2781751

PATIENT
  Age: 68 Year
  Sex: Female
  Weight: 45 kg

DRUGS (2)
  1. CAPECITABINE. [Suspect]
     Active Substance: CAPECITABINE
     Route: 048
  2. CAPECITABINE. [Suspect]
     Active Substance: CAPECITABINE
     Indication: BREAST CANCER METASTATIC
     Dosage: 21.0 DAYS
     Route: 048

REACTIONS (6)
  - Disease progression [Fatal]
  - Intestinal ischaemia [Fatal]
  - Diarrhoea [Fatal]
  - Febrile neutropenia [Fatal]
  - Mesenteric vascular occlusion [Fatal]
  - Mucosal inflammation [Fatal]
